FAERS Safety Report 5388895-9 (Version None)
Quarter: 2007Q3

REPORT INFORMATION
  Report Type: 
  Country: None (occurrence: None)
  Receive Date: 20070717
  Receipt Date: 20070705
  Transmission Date: 20080115
  Serious: Yes (Other)
  Sender: FDA-Public Use
  Company Number: HQWYE608114JUN07

PATIENT
  Age: 22 Year
  Sex: Female
  Weight: 97.16 kg

DRUGS (8)
  1. TYGACIL [Suspect]
     Indication: STAPHYLOCOCCAL INFECTION
     Dosage: 50 MG
     Route: 042
     Dates: start: 20070601, end: 20070601
  2. TYGACIL [Suspect]
     Dosage: 50 MG
     Route: 042
     Dates: start: 20070601, end: 20070622
  3. ZOFRAN [Concomitant]
     Dosage: 16 MG DAILY
     Route: 042
  4. ACTIQ [Concomitant]
     Indication: BREAKTHROUGH PAIN
     Dosage: 600 MCG 4 TIMES DAILY AS NEEDED
     Route: 065
  5. BACLOFEN [Concomitant]
     Route: 048
  6. LORAZEPAM [Concomitant]
     Indication: MUSCLE SPASMS
     Dosage: 2 MG 4 TIMES DAILY AS NEEDED
     Route: 065
  7. BENADRYL [Concomitant]
     Dosage: 50 MG EVERY 12 HOURS
     Route: 042
  8. MS CONTIN [Concomitant]
     Route: 048

REACTIONS (5)
  - BLOOD PRESSURE INCREASED [None]
  - CHEST PAIN [None]
  - HEART RATE INCREASED [None]
  - PYREXIA [None]
  - VOMITING [None]
